FAERS Safety Report 24793450 (Version 1)
Quarter: 2024Q4

REPORT INFORMATION
  Report Type: Spontaneous
  Country: US (occurrence: US)
  Receive Date: 20241231
  Receipt Date: 20241231
  Transmission Date: 20250115
  Serious: Yes (Other)
  Sender: GERON CORP
  Company Number: US-GERON CORPORATION-US-GER-24-000163

PATIENT
  Sex: Male

DRUGS (2)
  1. RYTELO [Suspect]
     Active Substance: IMETELSTAT SODIUM
     Indication: Myelodysplastic syndrome
     Dosage: UNK, UNK, CYCLE 1 DAY 1
     Route: 065
     Dates: start: 20240905
  2. RYTELO [Suspect]
     Active Substance: IMETELSTAT SODIUM
     Dosage: 5.6 MILLIGRAM/KILOGRAM, UNK, REDUCED DOSE CYCLE 2 DAY 1
     Route: 065
     Dates: start: 20241105

REACTIONS (2)
  - Neutropenia [Recovered/Resolved]
  - Thrombocytopenia [Recovered/Resolved]

NARRATIVE: CASE EVENT DATE: 20241006
